FAERS Safety Report 13995578 (Version 7)
Quarter: 2022Q1

REPORT INFORMATION
  Report Type: Spontaneous
  Country: US (occurrence: US)
  Receive Date: 20170921
  Receipt Date: 20220120
  Transmission Date: 20220423
  Serious: No
  Sender: FDA-Public Use
  Company Number: US-PFIZER INC-2017406193

PATIENT
  Age: 50 Year
  Sex: Female
  Weight: 85 kg

DRUGS (9)
  1. XELJANZ [Suspect]
     Active Substance: TOFACITINIB CITRATE
     Indication: Rheumatoid arthritis
     Dosage: 5 MG, TWICE DAILY
     Route: 048
     Dates: start: 2013
  2. XELJANZ [Suspect]
     Active Substance: TOFACITINIB CITRATE
     Dosage: 5 MG, 2X/DAY (1 TABLET IN THE MORNING AND 1 TABLET AT NIGHT)
     Route: 048
  3. XELJANZ [Suspect]
     Active Substance: TOFACITINIB CITRATE
     Dosage: 5 MG, UNK
     Dates: end: 20180115
  4. LEFLUNOMIDE [Suspect]
     Active Substance: LEFLUNOMIDE
     Dosage: UNK
  5. PREDNISONE [Concomitant]
     Active Substance: PREDNISONE
     Indication: Rheumatoid arthritis
     Dosage: 5 MG, 1X/DAY
     Route: 048
  6. WARFARIN [Concomitant]
     Active Substance: WARFARIN
     Indication: Thrombosis
     Dosage: 5 MG, 1X/DAY
     Route: 048
     Dates: start: 201707
  7. WARFARIN [Concomitant]
     Active Substance: WARFARIN
     Dosage: 2 MG, 1X/DAY
     Route: 048
     Dates: start: 201707
  8. IRON [Concomitant]
     Active Substance: IRON
     Indication: Anaemia
     Dosage: 27 MG, DAILY
     Route: 048
     Dates: start: 201711
  9. CALCIUM CARBONATE\CHOLECALCIFEROL [Concomitant]
     Active Substance: CALCIUM CARBONATE\CHOLECALCIFEROL
     Dosage: 1 DF, DAILY (CALCIUM 600 MG, VITAMIN D 800 IU)
     Route: 048

REACTIONS (1)
  - Chest pain [Recovered/Resolved]
